FAERS Safety Report 16786430 (Version 2)
Quarter: 2020Q1

REPORT INFORMATION
  Report Type: Report from Study
  Country: JP (occurrence: JP)
  Receive Date: 20190909
  Receipt Date: 20200213
  Transmission Date: 20200409
  Serious: Yes (Death, Life-Threatening, Disabling)
  Sender: FDA-Public Use
  Company Number: JP-BAUSCH-BL-2018-005819

PATIENT
  Age: 44 Year
  Sex: Male
  Weight: 56 kg

DRUGS (27)
  1. CHOREAZINE TABLETS 12.5 MG [Suspect]
     Active Substance: TETRABENAZINE
     Route: 048
     Dates: start: 20170221, end: 20170227
  2. HALOPERIDOL. [Suspect]
     Active Substance: HALOPERIDOL
     Route: 048
     Dates: start: 20180609, end: 20180703
  3. BROTIZOLAM [Concomitant]
     Active Substance: BROTIZOLAM
     Indication: HUNTINGTON^S DISEASE
     Route: 048
     Dates: start: 20170614, end: 20170705
  4. RISPERIDONE. [Concomitant]
     Active Substance: RISPERIDONE
     Route: 048
     Dates: start: 20171219, end: 20180121
  5. QUETIAPINE. [Concomitant]
     Active Substance: QUETIAPINE
     Route: 048
     Dates: start: 20180609, end: 20180610
  6. CHOREAZINE TABLETS 12.5 MG [Suspect]
     Active Substance: TETRABENAZINE
     Indication: HUNTINGTON^S DISEASE
     Route: 048
     Dates: start: 20170131, end: 20170206
  7. CHOREAZINE TABLETS 12.5 MG [Suspect]
     Active Substance: TETRABENAZINE
     Route: 048
     Dates: start: 20170228, end: 20170306
  8. SERENACE [Concomitant]
     Active Substance: HALOPERIDOL
     Indication: HUNTINGTON^S DISEASE
     Route: 048
     Dates: start: 20131115, end: 20140414
  9. SERENACE [Concomitant]
     Active Substance: HALOPERIDOL
     Route: 048
     Dates: start: 20140415, end: 20170125
  10. CHOREAZINE TABLETS 12.5 MG [Suspect]
     Active Substance: TETRABENAZINE
     Route: 048
     Dates: start: 20170214, end: 20170220
  11. MAGMITT [Suspect]
     Active Substance: MAGNESIUM OXIDE
     Indication: CONSTIPATION
     Route: 048
     Dates: start: 20170131, end: 20180703
  12. QUETIAPINE. [Concomitant]
     Active Substance: QUETIAPINE
     Route: 048
     Dates: start: 20180606, end: 20180608
  13. CHOREAZINE TABLETS 12.5 MG [Suspect]
     Active Substance: TETRABENAZINE
     Route: 048
     Dates: start: 20170207, end: 20170213
  14. CHOREAZINE TABLETS 12.5 MG [Suspect]
     Active Substance: TETRABENAZINE
     Route: 048
     Dates: start: 20170307, end: 20171218
  15. HALOPERIDOL. [Suspect]
     Active Substance: HALOPERIDOL
     Route: 048
     Dates: start: 20180608, end: 20180608
  16. RACOL-NF [Concomitant]
     Indication: HUNTINGTON^S DISEASE
     Route: 048
     Dates: start: 20171207, end: 20180421
  17. RISPERIDONE. [Concomitant]
     Active Substance: RISPERIDONE
     Indication: HUNTINGTON^S DISEASE
     Route: 048
     Dates: start: 20170728, end: 20171218
  18. QUETIAPINE. [Concomitant]
     Active Substance: QUETIAPINE
     Route: 048
     Dates: start: 20180611, end: 20180703
  19. LINTON [Suspect]
     Active Substance: HALOPERIDOL
     Indication: HUNTINGTON^S DISEASE
     Route: 048
     Dates: start: 20170126, end: 20170705
  20. SERENACE [Concomitant]
     Active Substance: HALOPERIDOL
     Route: 048
     Dates: start: 20180106, end: 20180424
  21. BROTIZOLAM [Concomitant]
     Active Substance: BROTIZOLAM
     Route: 048
     Dates: start: 20170706, end: 20180529
  22. LINTON [Suspect]
     Active Substance: HALOPERIDOL
     Route: 048
     Dates: start: 20170706, end: 20180105
  23. HALOPERIDOL. [Suspect]
     Active Substance: HALOPERIDOL
     Indication: HUNTINGTON^S DISEASE
     Route: 048
     Dates: start: 20180425, end: 20180607
  24. BROTIZOLAM [Concomitant]
     Active Substance: BROTIZOLAM
     Route: 048
     Dates: start: 20180530, end: 20180703
  25. RISPERIDONE. [Concomitant]
     Active Substance: RISPERIDONE
     Route: 048
     Dates: start: 20180122, end: 20180423
  26. QUETIAPINE. [Concomitant]
     Active Substance: QUETIAPINE
     Indication: PRODUCT USED FOR UNKNOWN INDICATION
     Route: 048
     Dates: start: 20180605, end: 20180605
  27. CHOREAZINE TABLETS 12.5 MG [Suspect]
     Active Substance: TETRABENAZINE
     Route: 048
     Dates: start: 20171219, end: 20180703

REACTIONS (15)
  - Alanine aminotransferase increased [Recovered/Resolved]
  - Hypokalaemia [Recovered/Resolved]
  - Conjunctivitis [Recovering/Resolving]
  - Conjunctivitis [Recovering/Resolving]
  - Pneumonia aspiration [Recovered/Resolved]
  - Haemorrhoidal haemorrhage [Recovering/Resolving]
  - Muscle rigidity [Fatal]
  - Decubitus ulcer [Fatal]
  - Dysuria [Recovering/Resolving]
  - Dysphagia [Fatal]
  - Blood prolactin increased [Fatal]
  - Diarrhoea [Recovering/Resolving]
  - Aspartate aminotransferase increased [Recovered/Resolved]
  - Insomnia [Fatal]
  - Blood urea increased [Recovered/Resolved]

NARRATIVE: CASE EVENT DATE: 20170220
